FAERS Safety Report 4412349-7 (Version None)
Quarter: 2004Q3

REPORT INFORMATION
  Report Type: 
  Country: None (occurrence: None)
  Receive Date: 20040730
  Receipt Date: 20040719
  Transmission Date: 20050211
  Serious: Yes (Hospitalization)
  Sender: FDA-Public Use
  Company Number: FR-MERCK-0407FRA00044

PATIENT
  Age: 66 Year
  Sex: Female

DRUGS (6)
  1. FENOFIBRATE [Concomitant]
     Route: 048
  2. HYDROCHLOROTHIAZIDE AND LISINOPRIL [Suspect]
     Indication: HYPERTENSION
     Route: 048
     Dates: end: 20040202
  3. MIANSERIN HYDROCHLORIDE [Suspect]
     Indication: DEPRESSION
     Route: 048
     Dates: start: 20040125, end: 20040131
  4. OXAZEPAM [Suspect]
     Route: 048
     Dates: start: 20040125, end: 20040131
  5. VIOXX [Suspect]
     Indication: OSTEOARTHRITIS
     Route: 048
     Dates: end: 20040202
  6. VERAPAMIL HYDROCHLORIDE [Concomitant]
     Route: 048

REACTIONS (3)
  - FACE INJURY [None]
  - HYPOTENSION [None]
  - RENAL FAILURE ACUTE [None]
